FAERS Safety Report 7612023-X (Version None)
Quarter: 2011Q3

REPORT INFORMATION
  Report Type: 
  Country: None (occurrence: None)
  Receive Date: 20110715
  Receipt Date: 20110701
  Transmission Date: 20111222
  Serious: Yes (Life-Threatening, Hospitalization)
  Sender: FDA-Public Use
  Company Number: FI-JNJFOC-20110705761

PATIENT
  Sex: Female

DRUGS (1)
  1. XARELTO [Suspect]
     Indication: THROMBOSIS PROPHYLAXIS
     Dates: start: 20110617, end: 20110619

REACTIONS (10)
  - HYPOTENSION [None]
  - VOMITING [None]
  - ILEUS PARALYTIC [None]
  - SEPTIC SHOCK [None]
  - DIALYSIS [None]
  - RENAL FAILURE ACUTE [None]
  - SPLENIC LESION [None]
  - GENERAL PHYSICAL HEALTH DETERIORATION [None]
  - INTRA-ABDOMINAL HAEMORRHAGE [None]
  - GASTROINTESTINAL NECROSIS [None]
